FAERS Safety Report 12210746 (Version 1)
Quarter: 2016Q1

REPORT INFORMATION
  Report Type: Spontaneous
  Country: US (occurrence: None)
  Receive Date: 20160324
  Receipt Date: 20160324
  Transmission Date: 20160526
  Serious: Yes (Other)
  Sender: FDA-Public Use
  Company Number: None

PATIENT
  Age: 58 Year
  Sex: Female
  Weight: 72 kg

DRUGS (23)
  1. LEVOPHED [Concomitant]
     Active Substance: NOREPINEPHRINE BITARTRATE
  2. LACTULOSE. [Concomitant]
     Active Substance: LACTULOSE
  3. PANTOPRAZOLE [Concomitant]
     Active Substance: PANTOPRAZOLE SODIUM
  4. PENTOXIFYLLINE ER [Concomitant]
  5. ERYTHROMYCIN. [Suspect]
     Active Substance: ERYTHROMYCIN
     Indication: GASTROINTESTINAL MOTILITY DISORDER
     Route: 048
     Dates: start: 20160307, end: 20160322
  6. INSULIN LISPRO [Concomitant]
     Active Substance: INSULIN LISPRO
  7. BROMOCRIPTINE [Concomitant]
     Active Substance: BROMOCRIPTINE
  8. SODIUM BENZOATE POWDER [Concomitant]
  9. MICAFUNGIN [Concomitant]
     Active Substance: MICAFUNGIN
  10. VASOPRESSION [Concomitant]
  11. MVI [Concomitant]
     Active Substance: VITAMINS
  12. NALOXONE [Concomitant]
     Active Substance: NALOXONE
  13. PREDNISONE. [Concomitant]
     Active Substance: PREDNISONE
  14. RIFAXIMIN [Concomitant]
     Active Substance: RIFAXIMIN
  15. VANCOMYCIN [Concomitant]
     Active Substance: VANCOMYCIN
  16. CEFEPIME [Concomitant]
     Active Substance: CEFEPIME HYDROCHLORIDE
  17. FLAGYL [Concomitant]
     Active Substance: METRONIDAZOLE\METRONIDAZOLE HYDROCHLORIDE
  18. FUROSEMIDE. [Concomitant]
     Active Substance: FUROSEMIDE
  19. ZOSYN [Concomitant]
     Active Substance: PIPERACILLIN SODIUM\TAZOBACTAM SODIUM
  20. CULTURELLE [Concomitant]
     Active Substance: LACTOBACILLUS RHAMNOSUS
  21. METOCLOPRAMIDE. [Concomitant]
     Active Substance: METOCLOPRAMIDE
  22. PHYTONADIONE. [Concomitant]
     Active Substance: PHYTONADIONE
  23. FLUCONAZOLE. [Concomitant]
     Active Substance: FLUCONAZOLE

REACTIONS (2)
  - Cholestasis [None]
  - Blood bilirubin increased [None]

NARRATIVE: CASE EVENT DATE: 20160314
